FAERS Safety Report 10217367 (Version 2)
Quarter: 2014Q2

REPORT INFORMATION
  Report Type: Other
  Country: CA (occurrence: CA)
  Receive Date: 20140604
  Receipt Date: 20140604
  Transmission Date: 20141212
  Serious: Yes (Hospitalization, Other)
  Sender: FDA-Public Use
  Company Number: CA-GSKPPD-2014GSK031384

PATIENT
  Sex: Female

DRUGS (4)
  1. AVANDIA [Suspect]
     Indication: DIABETES MELLITUS
     Dosage: DATES OF AVANDIA USE COULD NOT BE CONFIRMED IN RECORDS REVIEWED
     Route: 048
  2. ASPIRIN [Concomitant]
  3. WARFARIN [Concomitant]
  4. RAMIPRIL [Concomitant]

REACTIONS (5)
  - Transient ischaemic attack [None]
  - Myocardial ischaemia [None]
  - Angina pectoris [None]
  - Coronary artery stenosis [None]
  - Catheterisation cardiac [None]
